FAERS Safety Report 13197862 (Version 2)
Quarter: 2017Q1

REPORT INFORMATION
  Report Type: Spontaneous
  Country: US (occurrence: US)
  Receive Date: 20170208
  Receipt Date: 20170311
  Transmission Date: 20170428
  Serious: No
  Sender: FDA-Public Use
  Company Number: US-LUNDBECK-DKLU2022831

PATIENT
  Sex: Female

DRUGS (6)
  1. NORTHERA [Suspect]
     Active Substance: DROXIDOPA
     Indication: PRODUCT USED FOR UNKNOWN INDICATION
     Dosage: SCHEDULE B
     Route: 065
  2. NORTHERA [Suspect]
     Active Substance: DROXIDOPA
     Route: 065
  3. NORTHERA [Suspect]
     Active Substance: DROXIDOPA
     Route: 065
  4. NORTHERA [Suspect]
     Active Substance: DROXIDOPA
     Route: 065
  5. NORTHERA [Suspect]
     Active Substance: DROXIDOPA
     Route: 065
  6. NORTHERA [Suspect]
     Active Substance: DROXIDOPA
     Route: 065

REACTIONS (12)
  - Stress urinary incontinence [Unknown]
  - Dry eye [Unknown]
  - Dry mouth [Unknown]
  - Disturbance in attention [Unknown]
  - Tremor [Unknown]
  - Dizziness [Unknown]
  - Syncope [Unknown]
  - Temperature intolerance [Unknown]
  - Constipation [Unknown]
  - Asthenia [Unknown]
  - Paraesthesia [Unknown]
  - Inappropriate schedule of drug administration [Unknown]
